FAERS Safety Report 11665093 (Version 1)
Quarter: 2015Q4

REPORT INFORMATION
  Report Type: Spontaneous
  Country: US (occurrence: US)
  Receive Date: 20151027
  Receipt Date: 20151027
  Transmission Date: 20160304
  Serious: Yes (Other)
  Sender: FDA-Public Use
  Company Number: US-SMITH AND NEPHEW, INC-2015SMT00426

PATIENT
  Age: 62 Year
  Sex: Male
  Weight: 81.63 kg

DRUGS (4)
  1. REGRANEX [Suspect]
     Active Substance: BECAPLERMIN
     Indication: DIABETIC FOOT
     Dosage: UNK
     Route: 061
     Dates: start: 201509, end: 20151002
  2. REGRANEX [Suspect]
     Active Substance: BECAPLERMIN
     Dosage: UNK, 1X/DAY
     Route: 061
     Dates: start: 20151009
  3. CHEMOTHERAPY (UNSPECIFIED) [Concomitant]
  4. UNSPECIFIED MEDICATION(S) [Concomitant]

REACTIONS (1)
  - Skin graft [Unknown]

NARRATIVE: CASE EVENT DATE: 20151002
